FAERS Safety Report 9784975 (Version 1)
Quarter: 2013Q4

REPORT INFORMATION
  Report Type: Spontaneous
  Country: GB (occurrence: GB)
  Receive Date: 20131227
  Receipt Date: 20131227
  Transmission Date: 20140711
  Serious: Yes (Hospitalization, Other)
  Sender: FDA-Public Use
  Company Number: GB-009507513-1312GBR009409

PATIENT
  Age: 60 Year
  Sex: Male

DRUGS (2)
  1. LOSARTAN POTASSIUM 50 MG [Suspect]
     Indication: HYPERTENSION
     Dosage: 50 MG, UNK
     Route: 048
     Dates: start: 201310, end: 201311
  2. WARFARIN SODIUM [Concomitant]
     Dosage: UNK
     Route: 048

REACTIONS (1)
  - Dyspnoea [Recovering/Resolving]
